FAERS Safety Report 20862187 (Version 1)
Quarter: 2022Q2

REPORT INFORMATION
  Report Type: Spontaneous
  Country: US (occurrence: US)
  Receive Date: 20220523
  Receipt Date: 20220523
  Transmission Date: 20220721
  Serious: No
  Sender: FDA-Public Use
  Company Number: US-BRISTOL-MYERS SQUIBB COMPANY-2022-043059

PATIENT
  Age: 66 Year
  Sex: Female

DRUGS (17)
  1. REVLIMID [Suspect]
     Active Substance: LENALIDOMIDE
     Indication: Amyloidosis
     Dosage: FREQUENCY : TAKE 1 CAPSULE (10 MG TOTAL) BY MOUTH DAILY FOR 21 DAYS EVERY 28 DAY CYCLE. TAKE WITH WA
     Route: 048
     Dates: start: 20210209
  2. TRIAMCINOLONE AER SPRAY [Concomitant]
     Indication: Product used for unknown indication
  3. ACYCLOVIR [Concomitant]
     Active Substance: ACYCLOVIR
     Indication: Product used for unknown indication
  4. ALBUTEROL POW SULFATE [Concomitant]
     Indication: Product used for unknown indication
  5. ASPIRIN EC BUMEX TAB [Concomitant]
     Indication: Product used for unknown indication
  6. DEXAMETHASONE [Concomitant]
     Active Substance: DEXAMETHASONE
     Indication: Product used for unknown indication
  7. HUMALOG [Concomitant]
     Active Substance: INSULIN LISPRO
     Indication: Product used for unknown indication
  8. IMODIUM AD LIQ [Concomitant]
     Indication: Product used for unknown indication
     Dosage: DOSE : 1 MG/ 7.5
  9. LOTRIMIN AF [CLOTRIMAZOLE] [Concomitant]
     Indication: Product used for unknown indication
  10. MECLIZINE TAB [Concomitant]
     Indication: Product used for unknown indication
  11. MYLANTA SUS [Concomitant]
     Indication: Product used for unknown indication
  12. NASCOBAL SPR [Concomitant]
     Indication: Product used for unknown indication
     Dosage: DOSE : 500 MCG
  13. ONDANSETRON [Concomitant]
     Active Substance: ONDANSETRON
     Indication: Product used for unknown indication
     Dosage: DOSE : 4MG
  14. PANTOPRAZOLE [Concomitant]
     Active Substance: PANTOPRAZOLE
     Indication: Product used for unknown indication
     Dosage: DOSE : 40 MG
  15. POLYETHYLENE GLYCOL [Concomitant]
     Active Substance: POLYETHYLENE GLYCOL
     Indication: Product used for unknown indication
  16. TYLENOL COLD [Concomitant]
     Indication: Product used for unknown indication
  17. ERGOCALCIFEROL [Concomitant]
     Active Substance: ERGOCALCIFEROL
     Indication: Product used for unknown indication
     Dosage: CAP 50000 UNT

REACTIONS (1)
  - Diarrhoea [Unknown]
